FAERS Safety Report 15493196 (Version 1)
Quarter: 2018Q4

REPORT INFORMATION
  Report Type: Spontaneous
  Country: GB (occurrence: GB)
  Receive Date: 20181012
  Receipt Date: 20181012
  Transmission Date: 20190205
  Serious: Yes (Other)
  Sender: FDA-Public Use
  Company Number: GB-TEVA-2018-GB-963653

PATIENT
  Age: 13 Year
  Sex: Female
  Weight: 51.25 kg

DRUGS (2)
  1. CIRCADIN [Concomitant]
     Active Substance: MELATONIN
     Route: 065
  2. PROPRANOLOL [Suspect]
     Active Substance: PROPRANOLOL HYDROCHLORIDE
     Indication: ANXIETY
     Dosage: 80 MILLIGRAM DAILY;
     Route: 048
     Dates: start: 20180515, end: 20180915

REACTIONS (21)
  - Fatigue [Not Recovered/Not Resolved]
  - Vomiting [Not Recovered/Not Resolved]
  - Flatulence [Recovering/Resolving]
  - Decreased appetite [Not Recovered/Not Resolved]
  - Somnolence [Not Recovered/Not Resolved]
  - Renal function test abnormal [Unknown]
  - Abdominal pain [Recovering/Resolving]
  - Menorrhagia [Recovered/Resolved]
  - Muscular weakness [Not Recovered/Not Resolved]
  - Oropharyngeal pain [Recovering/Resolving]
  - Urticaria [Not Recovered/Not Resolved]
  - Pharyngitis [Recovered/Resolved]
  - Liver function test abnormal [Unknown]
  - Urine output decreased [Recovering/Resolving]
  - Pyrexia [Recovered/Resolved]
  - Epistaxis [Recovered/Resolved]
  - Nausea [Not Recovered/Not Resolved]
  - Initial insomnia [Not Recovered/Not Resolved]
  - Depression [Not Recovered/Not Resolved]
  - Constipation [Recovering/Resolving]
  - Hyperhidrosis [Recovered/Resolved]

NARRATIVE: CASE EVENT DATE: 20180615
